FAERS Safety Report 25301258 (Version 1)
Quarter: 2025Q2

REPORT INFORMATION
  Report Type: Spontaneous
  Country: US (occurrence: None)
  Receive Date: 20250512
  Receipt Date: 20250512
  Transmission Date: 20250717
  Serious: Yes (Hospitalization)
  Sender: FDA-CTU
  Company Number: None

PATIENT
  Sex: Female

DRUGS (11)
  1. RINVOQ [Suspect]
     Active Substance: UPADACITINIB
     Indication: Product used for unknown indication
     Route: 048
     Dates: start: 20240828
  2. ALBUTEROL SULFATE [Concomitant]
     Active Substance: ALBUTEROL SULFATE
  3. ALENDRONATE [Concomitant]
     Active Substance: ALENDRONATE SODIUM
  4. ATORVASTATIN [Concomitant]
     Active Substance: ATORVASTATIN
  5. BENZONATATE [Concomitant]
     Active Substance: BENZONATATE
  6. BUMETANIDE [Concomitant]
     Active Substance: BUMETANIDE
  7. CARDIZEM LA [Concomitant]
     Active Substance: DILTIAZEM HYDROCHLORIDE
  8. DOXYCYCLINE [Concomitant]
     Active Substance: DOXYCYCLINE
  9. DOXYCYCLINE HYCLATE [Concomitant]
     Active Substance: DOXYCYCLINE HYCLATE
  10. FAMOTIDINE [Concomitant]
     Active Substance: FAMOTIDINE
  11. FLUTICASONE [Concomitant]
     Active Substance: FLUTICASONE

REACTIONS (4)
  - Pneumonia [None]
  - COVID-19 [None]
  - Asthma [None]
  - Pain [None]
